FAERS Safety Report 15473088 (Version 3)
Quarter: 2018Q4

REPORT INFORMATION
  Report Type: Report from Study
  Country: US (occurrence: US)
  Receive Date: 20181008
  Receipt Date: 20181023
  Transmission Date: 20190205
  Serious: No
  Sender: FDA-Public Use
  Company Number: US-AMGEN INC.-USASL2018130281

PATIENT
  Age: 62 Year
  Sex: Female
  Weight: 67.77 kg

DRUGS (4)
  1. TORADOL [Concomitant]
     Active Substance: KETOROLAC TROMETHAMINE
     Indication: MIGRAINE
     Dosage: 30 MG, AS NECESSARY
  2. BENADRYL [Concomitant]
     Active Substance: DIPHENHYDRAMINE HYDROCHLORIDE
     Indication: MIGRAINE
     Dosage: 50 MG, AS NECESSARY
  3. AIMOVIG [Suspect]
     Active Substance: ERENUMAB-AOOE
     Indication: MIGRAINE WITHOUT AURA
     Dosage: 70 MG, QMO
     Route: 058
     Dates: start: 20180713, end: 20180913
  4. PROMETHAZINE [Concomitant]
     Active Substance: PROMETHAZINE\PROMETHAZINE HYDROCHLORIDE
     Indication: MIGRAINE
     Dosage: 25 MG, AS NECESSARY

REACTIONS (6)
  - Memory impairment [Recovered/Resolved]
  - Nervousness [Recovered/Resolved]
  - Vomiting [Recovered/Resolved]
  - Dry mouth [Not Recovered/Not Resolved]
  - Nausea [Recovered/Resolved]
  - Slow speech [Recovered/Resolved]

NARRATIVE: CASE EVENT DATE: 201807
